FAERS Safety Report 10534133 (Version 1)
Quarter: 2014Q4

REPORT INFORMATION
  Report Type: Spontaneous
  Country: US (occurrence: None)
  Receive Date: 20141020
  Receipt Date: 20141020
  Transmission Date: 20150529
  Serious: Yes (Other)
  Sender: FDA-Public Use
  Company Number: BL-2014-005524

PATIENT
  Age: 55 Year
  Sex: Female
  Weight: 74.84 kg

DRUGS (3)
  1. HYDROCHLOROTHIAZIDE (HYDROCHLOROTHIAZIDE) [Concomitant]
     Active Substance: HYDROCHLOROTHIAZIDE
  2. ACNEFREE CLEAR SKIN TREATMENTS 24 HOUR SEVERE ACNE CLEARING SYSTEM [Suspect]
     Active Substance: BENZOYL PEROXIDE
     Indication: PRODUCT USED FOR UNKNOWN INDICATION
  3. ATENOLOL (ATENOLOL) [Concomitant]
     Active Substance: ATENOLOL

REACTIONS (2)
  - Hypersensitivity [None]
  - Paraesthesia [None]

NARRATIVE: CASE EVENT DATE: 20140914
